FAERS Safety Report 9459201 (Version 1)
Quarter: 2013Q3

REPORT INFORMATION
  Report Type: Spontaneous
  Country: US (occurrence: US)
  Receive Date: 20130814
  Receipt Date: 20130814
  Transmission Date: 20140515
  Serious: Yes (Other)
  Sender: FDA-Public Use
  Company Number: US-PFIZER INC-2013235624

PATIENT
  Sex: Male

DRUGS (2)
  1. PRISTIQ [Suspect]
     Dosage: UNK
  2. ZYVOX [Interacting]
     Dosage: UNK

REACTIONS (5)
  - Off label use [Unknown]
  - Drug interaction [Unknown]
  - Cellulitis [Unknown]
  - Immunodeficiency [Unknown]
  - Feeling abnormal [Unknown]
